FAERS Safety Report 12056728 (Version 3)
Quarter: 2016Q4

REPORT INFORMATION
  Report Type: Spontaneous
  Country: US (occurrence: US)
  Receive Date: 20160209
  Receipt Date: 20161222
  Transmission Date: 20170206
  Serious: Yes (Disabling, Other)
  Sender: FDA-Public Use
  Company Number: US-TEVA-632116USA

PATIENT
  Sex: Female

DRUGS (1)
  1. PROAIR HFA [Suspect]
     Active Substance: ALBUTEROL SULFATE
     Route: 055

REACTIONS (6)
  - Traumatic lung injury [Unknown]
  - Chest pain [Unknown]
  - Bronchial injury [Unknown]
  - Pharyngeal injury [Unknown]
  - Traumatic shock [Unknown]
  - Foreign body aspiration [Unknown]
